FAERS Safety Report 6265913-7 (Version None)
Quarter: 2009Q3

REPORT INFORMATION
  Report Type: 
  Country: None (occurrence: None)
  Receive Date: 20090713
  Receipt Date: 20090702
  Transmission Date: 20100115
  Serious: Yes (Other)
  Sender: FDA-Public Use
  Company Number: PHHY2009US27493

PATIENT
  Age: 39 Year
  Sex: Male

DRUGS (1)
  1. ELIDEL [Suspect]

REACTIONS (1)
  - HODGKIN'S DISEASE LYMPHOCYTE PREDOMINANCE STAGE I SITE UNSPEC [None]
